FAERS Safety Report 13727420 (Version 3)
Quarter: 2017Q3

REPORT INFORMATION
  Report Type: Spontaneous
  Country: US (occurrence: US)
  Receive Date: 20170706
  Receipt Date: 20170912
  Transmission Date: 20171127
  Serious: No
  Sender: FDA-Public Use
  Company Number: US-EMD SERONO-8166982

PATIENT
  Age: 55 Year
  Sex: Female

DRUGS (2)
  1. REBIF [Suspect]
     Active Substance: INTERFERON BETA-1A
     Indication: MULTIPLE SCLEROSIS
     Route: 058
     Dates: start: 20170330
  2. REBIF [Suspect]
     Active Substance: INTERFERON BETA-1A
     Route: 058
     Dates: start: 20170419, end: 20170722

REACTIONS (11)
  - Influenza like illness [Not Recovered/Not Resolved]
  - Migraine [Recovering/Resolving]
  - Ulcer [Recovering/Resolving]
  - Pain [Recovering/Resolving]
  - Cough [Not Recovered/Not Resolved]
  - Blister [Recovering/Resolving]
  - Dry mouth [Not Recovered/Not Resolved]
  - Adverse drug reaction [Unknown]
  - Sinus congestion [Not Recovered/Not Resolved]
  - Nasopharyngitis [Not Recovered/Not Resolved]
  - Wheezing [Not Recovered/Not Resolved]

NARRATIVE: CASE EVENT DATE: 20170505
